FAERS Safety Report 9778564 (Version 1)
Quarter: 2013Q4

REPORT INFORMATION
  Report Type: Spontaneous
  Country: US (occurrence: None)
  Receive Date: 20131220
  Receipt Date: 20131220
  Transmission Date: 20140711
  Serious: Yes (Hospitalization)
  Sender: FDA-Public Use
  Company Number: None

PATIENT
  Age: 83 Year
  Sex: Male
  Weight: 103.3 kg

DRUGS (1)
  1. METOCLOPRAMIDE [Suspect]
     Route: 048
     Dates: start: 20130930, end: 20131122

REACTIONS (2)
  - Tremor [None]
  - Parkinsonism [None]
